FAERS Safety Report 11679987 (Version 2)
Quarter: 2015Q4

REPORT INFORMATION
  Report Type: Spontaneous
  Country: US (occurrence: US)
  Receive Date: 20151027
  Receipt Date: 20151104
  Transmission Date: 20160304
  Serious: No
  Sender: FDA-Public Use
  Company Number: US-ELI_LILLY_AND_COMPANY-US201011004561

PATIENT
  Age: 61 Year
  Sex: Female

DRUGS (1)
  1. FORTEO [Suspect]
     Active Substance: TERIPARATIDE
     Indication: OSTEOPOROSIS
     Dosage: UNK, UNK

REACTIONS (5)
  - Intentional product misuse [Unknown]
  - Muscle spasms [Unknown]
  - Movement disorder [Unknown]
  - Sleep disorder due to a general medical condition [Unknown]
  - Malaise [Unknown]

NARRATIVE: CASE EVENT DATE: 20101111
